FAERS Safety Report 13772867 (Version 1)
Quarter: 2017Q3

REPORT INFORMATION
  Report Type: Report from Study
  Country: FR (occurrence: FR)
  Receive Date: 20170720
  Receipt Date: 20170720
  Transmission Date: 20171127
  Serious: Yes (Hospitalization, Other)
  Sender: FDA-Public Use
  Company Number: FR-APOPHARMA USA, INC.-2017AP009964

PATIENT
  Age: 68 Year
  Sex: Female
  Weight: 57 kg

DRUGS (5)
  1. DEROXAT [Concomitant]
     Active Substance: PAROXETINE HYDROCHLORIDE
     Indication: DEPRESSION
     Dosage: 20 MG, QD
     Route: 048
     Dates: start: 20170104
  2. XANAX [Concomitant]
     Active Substance: ALPRAZOLAM
     Indication: ANXIETY
     Dosage: 0.375 MG, QD
     Route: 048
     Dates: start: 20170203
  3. BLINDED DEFERIPRONE [Suspect]
     Active Substance: DEFERIPRONE
     Indication: PARKINSON^S DISEASE
     Dosage: 30 MG/KG, QD
     Route: 048
     Dates: start: 20160930, end: 20170209
  4. BLINDED PLACEBO [Suspect]
     Active Substance: INVESTIGATIONAL PRODUCT
     Indication: PARKINSON^S DISEASE
     Dosage: 30 MG/KG, QD
     Route: 048
     Dates: start: 20160930, end: 20170209
  5. ZOMIG [Concomitant]
     Active Substance: ZOLMITRIPTAN
     Indication: MIGRAINE
     Dosage: 2.5 MG, QD
     Route: 048
     Dates: start: 2000

REACTIONS (1)
  - Neutropenia [Recovered/Resolved]

NARRATIVE: CASE EVENT DATE: 20170208
